FAERS Safety Report 15373103 (Version 1)
Quarter: 2018Q3

REPORT INFORMATION
  Report Type: Spontaneous
  Country: US (occurrence: US)
  Receive Date: 20180912
  Receipt Date: 20180912
  Transmission Date: 20181010
  Serious: No
  Sender: FDA-Public Use
  Company Number: US-TOLMAR, INC.-2018US005845

PATIENT

DRUGS (2)
  1. CASODEX [Concomitant]
     Active Substance: BICALUTAMIDE
  2. ELIGARD [Suspect]
     Active Substance: LEUPROLIDE ACETATE
     Indication: SALIVARY GLAND CANCER RECURRENT
     Route: 065

REACTIONS (1)
  - Off label use [Unknown]
